FAERS Safety Report 6274687-5 (Version None)
Quarter: 2009Q3

REPORT INFORMATION
  Report Type: 
  Country: None (occurrence: None)
  Receive Date: 20090721
  Receipt Date: 20070627
  Transmission Date: 20100115
  Serious: Yes (Other)
  Sender: FDA-Public Use
  Company Number: US-ASTRAZENECA-2006UW23878

PATIENT
  Age: 18725 Day
  Sex: Male
  Weight: 110.2 kg

DRUGS (19)
  1. SEROQUEL [Suspect]
     Indication: DEPRESSION
     Dosage: 100 MG TO 300 MG
     Route: 048
     Dates: start: 20030429
  2. SEROQUEL [Suspect]
     Route: 048
     Dates: end: 20050101
  3. ZYPREXA [Concomitant]
     Dates: start: 20010101
  4. MELOXICAM [Concomitant]
     Route: 048
  5. TRAMADOL HCL [Concomitant]
     Route: 048
  6. OMEPRAZOLE [Concomitant]
     Route: 048
  7. ASPIRIN [Concomitant]
     Route: 065
  8. CHLORPHENIRAMINE [Concomitant]
     Route: 065
  9. RITALIN [Concomitant]
     Dosage: 10 TO 30 MG, QD
     Route: 048
  10. PROVIGIL [Concomitant]
     Dosage: 200 TO 400 MG
     Route: 048
  11. ULTRAM [Concomitant]
     Route: 048
  12. VYTORIN [Concomitant]
     Dosage: 10/40 MG ONCE
     Route: 048
  13. MIRAPEX [Concomitant]
     Route: 065
  14. EFFEXOR [Concomitant]
     Dosage: 75 TO 150 MG
     Route: 065
  15. METFORMIN HCL [Concomitant]
     Route: 048
  16. ACTOS [Concomitant]
     Route: 048
  17. LOVASTATIN [Concomitant]
     Route: 048
  18. DARVOCET-N 100 [Concomitant]
     Dosage: 100 TID
     Route: 048
  19. NEXIUM [Concomitant]
     Route: 048

REACTIONS (3)
  - DIABETES MELLITUS [None]
  - DIABETIC NEUROPATHY [None]
  - TYPE 2 DIABETES MELLITUS [None]
